FAERS Safety Report 8389979-3 (Version None)
Quarter: 2012Q2

REPORT INFORMATION
  Report Type: 
  Country: None (occurrence: None)
  Receive Date: 20120529
  Receipt Date: 20120522
  Transmission Date: 20120825
  Serious: No
  Sender: FDA-Public Use
  Company Number: US-PFIZER INC-2012063355

PATIENT
  Sex: Male
  Weight: 93.4 kg

DRUGS (3)
  1. SUTENT [Suspect]
     Dosage: 50 MG, UNK FOR 14 DAYS AND RESTING FOR 7 DAYS)
     Dates: start: 20120422
  2. SUTENT [Suspect]
     Indication: METASTATIC RENAL CELL CARCINOMA
     Dosage: 12.5 MG, (3 CAPS DAILY)
     Dates: start: 20120221
  3. SUTENT [Suspect]
     Indication: RENAL CANCER
     Dosage: 50 MG, UNK (FOR 14 DAYS AND RESTING FOR 7 WEEKS)
     Dates: start: 20120225, end: 20120307

REACTIONS (8)
  - SKIN FISSURES [None]
  - VOMITING [None]
  - DRY SKIN [None]
  - PRURITUS [None]
  - DRY MOUTH [None]
  - ABDOMINAL DISCOMFORT [None]
  - NASAL DRYNESS [None]
  - OEDEMA PERIPHERAL [None]
